FAERS Safety Report 10384651 (Version 1)
Quarter: 2014Q3

REPORT INFORMATION
  Report Type: Report from Study
  Country: KR (occurrence: KR)
  Receive Date: 20140814
  Receipt Date: 20140814
  Transmission Date: 20150326
  Serious: Yes (Hospitalization, Other)
  Sender: FDA-Public Use
  Company Number: KR-OTSUKA-JP-2014-16603

PATIENT
  Age: 75 Year
  Sex: Female

DRUGS (15)
  1. AMBROXOL [Concomitant]
     Active Substance: AMBROXOL
     Indication: HYPONATRAEMIA
     Dosage: 90 MG MILLIGRAM(S), DAILY DOSE
     Route: 048
     Dates: start: 20140728, end: 20140804
  2. INSULIN GLARGINE [Concomitant]
     Active Substance: INSULIN GLARGINE
     Indication: HYPONATRAEMIA
     Dosage: 20 IU, DAILY DOSE
     Route: 058
     Dates: start: 20140802, end: 20140802
  3. FUROSEMIDE. [Concomitant]
     Active Substance: FUROSEMIDE
     Indication: HYPONATRAEMIA
     Dosage: 760 MG MILLIGRAM(S), DAILY DOSE
     Route: 042
     Dates: start: 20140802, end: 20140802
  4. ATORVASTATIN [Concomitant]
     Active Substance: ATORVASTATIN
     Indication: HYPONATRAEMIA
     Dosage: 40 MG MILLIGRAM(S), DAILY DOSE
     Route: 048
     Dates: start: 20140720
  5. CALCIUM GLUCONATE. [Concomitant]
     Active Substance: CALCIUM GLUCONATE
     Indication: HYPONATRAEMIA
     Dosage: 2 G GRAM(S), DAILY DOSE
     Route: 042
     Dates: start: 20140801
  6. SAMSCA [Suspect]
     Active Substance: TOLVAPTAN
     Indication: HYPONATRAEMIA
     Dosage: 15 MG MILLIGRAM(S), QD
     Route: 048
     Dates: start: 20140802, end: 20140803
  7. LANSOPRAZOLE. [Concomitant]
     Active Substance: LANSOPRAZOLE
     Indication: PROPHYLAXIS
     Dosage: 30 MG MILLIGRAM(S), DAILY DOSE
     Route: 048
     Dates: start: 20140801, end: 20140804
  8. ALBUMIN [Concomitant]
     Active Substance: ALBUMIN (HUMAN)
     Indication: HYPONATRAEMIA
     Dosage: 100 ML MILLILITRE(S), DAILY DOSE
     Route: 042
     Dates: start: 20140802, end: 20140802
  9. TAZOPERAN [Concomitant]
     Indication: HYPONATRAEMIA
     Dosage: 2.25 MG MILLIGRAM(S), DAILY DOSE
     Route: 042
     Dates: start: 20140802
  10. ASPIRIN. [Concomitant]
     Active Substance: ASPIRIN
     Indication: HYPONATRAEMIA
     Dosage: 100 MG MILLIGRAM(S), DAILY DOSE
     Route: 048
     Dates: start: 20140720
  11. BESZYME [Concomitant]
     Indication: PROPHYLAXIS
     Dosage: 3 DF DOSAGE FORM, DAILY DOSE
     Route: 048
     Dates: start: 20140801, end: 20140804
  12. HEPARIN [Concomitant]
     Active Substance: HEPARIN SODIUM
     Indication: HYPONATRAEMIA
     Dosage: 25000 IU, DAILY DOSE
     Route: 050
     Dates: start: 20140801, end: 20140803
  13. CLOPIDOGREL [Concomitant]
     Active Substance: CLOPIDOGREL BISULFATE
     Indication: HYPONATRAEMIA
     Dosage: 75 MG MILLIGRAM(S), DAILY DOSE
     Route: 048
     Dates: start: 20140720
  14. ALPRAZOLAM. [Concomitant]
     Active Substance: ALPRAZOLAM
     Indication: HYPONATRAEMIA
     Dosage: 0.25 MG MILLIGRAM(S), DAILY DOSE
     Route: 048
     Dates: start: 20140801, end: 20140803
  15. INSULIN GLARGINE [Concomitant]
     Active Substance: INSULIN GLARGINE
     Dosage: 14 IU, DAILY DOSE
     Route: 058
     Dates: start: 20140801, end: 20140803

REACTIONS (3)
  - Blood urea increased [Recovering/Resolving]
  - Pulmonary oedema [Recovering/Resolving]
  - Hyperglycaemia [Recovering/Resolving]

NARRATIVE: CASE EVENT DATE: 20140803
